FAERS Safety Report 4353171-X (Version None)
Quarter: 2004Q2

REPORT INFORMATION
  Report Type: 
  Country: None (occurrence: None)
  Receive Date: 20040504
  Receipt Date: 20040504
  Transmission Date: 20050107
  Serious: Yes (Life-Threatening, Hospitalization, Disabling)
  Sender: FDA-Public Use
  Company Number: None

PATIENT
  Sex: Female
  Weight: 50.8029 kg

DRUGS (1)
  1. VASOTEC [Suspect]
     Indication: HYPERTENSION
     Dosage: 1 DAILY ORAL
     Route: 048

REACTIONS (3)
  - MARKEDLY REDUCED DIETARY INTAKE [None]
  - PARAESTHESIA ORAL [None]
  - STEVENS-JOHNSON SYNDROME [None]
